FAERS Safety Report 9158124 (Version 4)
Quarter: 2013Q3

REPORT INFORMATION
  Report Type: Spontaneous
  Country: US (occurrence: US)
  Receive Date: 20130312
  Receipt Date: 20130809
  Transmission Date: 20140515
  Serious: Yes (Other)
  Sender: FDA-Public Use
  Company Number: US-ROCHE-1198537

PATIENT
  Age: 49 Year
  Sex: Male

DRUGS (6)
  1. ZELBORAF [Suspect]
     Indication: MALIGNANT MELANOMA STAGE IV
     Route: 048
  2. ZELBORAF [Suspect]
     Route: 048
  3. LISINOPRIL [Concomitant]
  4. PROCHLORPERAZINE [Concomitant]
  5. SENNA [Concomitant]
  6. DOCUSATE [Concomitant]

REACTIONS (1)
  - Pancreatitis [Recovered/Resolved]
